FAERS Safety Report 7330609-7 (Version None)
Quarter: 2011Q1

REPORT INFORMATION
  Report Type: 
  Country: None (occurrence: None)
  Receive Date: 20110304
  Receipt Date: 20110224
  Transmission Date: 20110831
  Serious: No
  Sender: FDA-Public Use
  Company Number: US-BIOGENIDEC-2011BI007611

PATIENT
  Age: 45 Year
  Sex: Female

DRUGS (5)
  1. AVONEX [Concomitant]
     Route: 030
     Dates: start: 20090321
  2. AVONEX [Concomitant]
     Route: 030
     Dates: start: 20041006
  3. AVONEX [Concomitant]
     Indication: MULTIPLE SCLEROSIS
     Route: 030
     Dates: start: 20100610
  4. TYSABRI [Suspect]
     Indication: MULTIPLE SCLEROSIS
     Route: 042
     Dates: start: 20100405, end: 20100405
  5. AVONEX [Concomitant]
     Route: 030
     Dates: end: 20070905

REACTIONS (3)
  - VAGINAL INFECTION [None]
  - URINARY TRACT INFECTION [None]
  - ASTHENIA [None]
